FAERS Safety Report 6314089-6 (Version None)
Quarter: 2009Q3

REPORT INFORMATION
  Report Type: 
  Country: None (occurrence: None)
  Receive Date: 20090818
  Receipt Date: 20090812
  Transmission Date: 20100115
  Serious: Yes (Life-Threatening, Hospitalization, Other)
  Sender: FDA-Public Use
  Company Number: FR-MERCK-0908FRA00020

PATIENT
  Age: 61 Year
  Sex: Male

DRUGS (9)
  1. ZOCOR [Suspect]
     Indication: HYPERCHOLESTEROLAEMIA
     Route: 048
     Dates: end: 20080616
  2. CLOPIDOGREL BISULFATE [Concomitant]
     Route: 065
  3. LEVOTHYROXINE SODIUM [Concomitant]
     Route: 065
  4. AMIODARONE HYDROCHLORIDE [Concomitant]
     Route: 065
  5. POTASSIUM CHLORIDE [Concomitant]
     Route: 048
  6. RAMIPRIL [Concomitant]
     Route: 065
  7. ALLOPURINOL [Concomitant]
     Route: 065
  8. GLIMEPIRIDE [Concomitant]
     Route: 065
  9. BISOPROLOL FUMARATE [Concomitant]
     Route: 065

REACTIONS (4)
  - MYOGLOBIN BLOOD INCREASED [None]
  - RENAL TUBULAR NECROSIS [None]
  - RHABDOMYOLYSIS [None]
  - TRANSAMINASES INCREASED [None]
